FAERS Safety Report 21896952 (Version 1)
Quarter: 2023Q1

REPORT INFORMATION
  Report Type: Spontaneous
  Country: US (occurrence: None)
  Receive Date: 20230120
  Receipt Date: 20230120
  Transmission Date: 20230418
  Serious: Yes (Hospitalization)
  Sender: FDA-Public Use
  Company Number: None

PATIENT
  Sex: Male

DRUGS (1)
  1. TEMOZOLOMIDE [Suspect]
     Active Substance: TEMOZOLOMIDE
     Indication: Brain neoplasm malignant
     Dosage: TAKE 4 CAPSULES (400 MG) BY MOUTH ONCE DAILY FOR 5 DAYS STRAIGHT, THEN 23 DAYS OFF A 28 DAY CYCLE.?
     Route: 048
     Dates: start: 202208

REACTIONS (1)
  - Thrombosis [None]
